FAERS Safety Report 17214122 (Version 1)
Quarter: 2020Q1

REPORT INFORMATION
  Report Type: Spontaneous
  Country: US (occurrence: US)
  Receive Date: 20191227
  Receipt Date: 20191227
  Transmission Date: 20200409
  Serious: Yes (Other)
  Sender: FDA-Public Use
  Company Number: None

PATIENT
  Age: 74 Year
  Sex: Female

DRUGS (1)
  1. PROLIA [Suspect]
     Active Substance: DENOSUMAB
     Indication: OSTEOPOROSIS
     Dosage: ?          OTHER FREQUENCY:ONCE EVERY 6 MONTH;?
     Route: 058
     Dates: start: 20191024, end: 20191211

REACTIONS (2)
  - Pain in jaw [None]
  - Toothache [None]

NARRATIVE: CASE EVENT DATE: 20191211
